FAERS Safety Report 4630113-0 (Version None)
Quarter: 2005Q2

REPORT INFORMATION
  Report Type: 
  Country: None (occurrence: None)
  Receive Date: 20050408
  Receipt Date: 20050204
  Transmission Date: 20051028
  Serious: Yes (Other)
  Sender: FDA-Public Use
  Company Number: FR-GLAXOSMITHKLINE-B0370809A

PATIENT
  Age: 14 Year
  Sex: Female

DRUGS (5)
  1. SERETIDE [Suspect]
     Indication: ASTHMA
     Route: 055
     Dates: start: 20000101, end: 20050101
  2. TELZIR [Suspect]
     Indication: HIV INFECTION
     Dosage: 700MG TWICE PER DAY
     Route: 048
     Dates: start: 20041122, end: 20050121
  3. NORVIR [Suspect]
     Indication: HIV INFECTION
     Dosage: 100MG TWICE PER DAY
     Route: 048
     Dates: start: 20041122, end: 20050121
  4. ABACAVIR [Concomitant]
     Indication: HIV INFECTION
     Dosage: 300MG TWICE PER DAY
     Route: 048
     Dates: start: 20040205, end: 20050121
  5. VIREAD [Concomitant]
     Indication: HIV INFECTION
     Dosage: 245MG PER DAY
     Route: 048
     Dates: start: 20040205, end: 20050121

REACTIONS (12)
  - ASTHMA [None]
  - BLOOD CORTISOL DECREASED [None]
  - CUSHING'S SYNDROME [None]
  - HIRSUTISM [None]
  - HYPERCORTICOIDISM [None]
  - HYPERPHAGIA [None]
  - ILL-DEFINED DISORDER [None]
  - INTENTIONAL MISUSE [None]
  - INTERSTITIAL LUNG DISEASE [None]
  - LIPODYSTROPHY ACQUIRED [None]
  - OBESITY [None]
  - WEIGHT INCREASED [None]
